FAERS Safety Report 15193295 (Version 1)
Quarter: 2018Q3

REPORT INFORMATION
  Report Type: Spontaneous
  Country: US (occurrence: US)
  Receive Date: 20180725
  Receipt Date: 20180725
  Transmission Date: 20181010
  Serious: Yes (Other)
  Sender: FDA-Public Use
  Company Number: US-BAUSCH-BL-2018-019915

PATIENT
  Age: 79 Year
  Sex: Female

DRUGS (2)
  1. TETRACAINE. [Suspect]
     Active Substance: TETRACAINE
     Indication: ANAESTHESIA
     Route: 065
  2. PROPARACAINE HYDROCHLORIDE. [Suspect]
     Active Substance: PROPARACAINE HYDROCHLORIDE
     Indication: ANAESTHESIA
     Route: 065

REACTIONS (1)
  - Type I hypersensitivity [Unknown]
